FAERS Safety Report 8313520-4 (Version None)
Quarter: 2012Q2

REPORT INFORMATION
  Report Type: 
  Country: None (occurrence: None)
  Receive Date: 20120426
  Receipt Date: 20120127
  Transmission Date: 20120825
  Serious: Yes (Other)
  Sender: FDA-Public Use
  Company Number: CA-UCBSA-049821

PATIENT
  Sex: Female

DRUGS (8)
  1. VIT D/CALCIUM ++ MULTIVITAMIN [Concomitant]
     Indication: VITAMIN SUPPLEMENTATION
     Route: 048
  2. CLARITIN [Concomitant]
     Indication: ANTIALLERGIC THERAPY
     Dosage: DOSE:I
     Route: 048
     Dates: start: 20111201
  3. CIMZIA [Suspect]
     Indication: RHEUMATOID ARTHRITIS
     Route: 058
     Dates: start: 20110420
  4. ACTONEL [Concomitant]
     Indication: OSTEOPOROSIS
     Route: 048
  5. PREDNISONE TAB [Concomitant]
     Indication: RHEUMATOID ARTHRITIS
     Route: 048
     Dates: start: 20080101
  6. FOLIC ACID [Concomitant]
     Indication: VITAMIN SUPPLEMENTATION
     Dosage: ONCE DAILY 6/7
     Route: 048
  7. CIMZIA [Suspect]
     Route: 058
     Dates: start: 20110223, end: 20110323
  8. METHOTREXATE [Concomitant]
     Indication: RHEUMATOID ARTHRITIS
     Route: 048
     Dates: start: 20080101

REACTIONS (2)
  - SKIN DISCOLOURATION [None]
  - HERPES ZOSTER [None]
